FAERS Safety Report 7002326-4 (Version None)
Quarter: 2010Q3

REPORT INFORMATION
  Report Type: 
  Country: None (occurrence: None)
  Receive Date: 20100917
  Receipt Date: 20100917
  Transmission Date: 20110219
  Serious: Yes (Other)
  Sender: FDA-Public Use
  Company Number: None

PATIENT
  Sex: Female
  Weight: 42.7 kg

DRUGS (2)
  1. OXYCONTIN [Suspect]
     Indication: PAIN
     Dates: start: 20100831
  2. OXYCONTIN [Suspect]
     Indication: SICKLE CELL ANAEMIA
     Dates: start: 20100831

REACTIONS (3)
  - ABDOMINAL PAIN [None]
  - DIARRHOEA [None]
  - PRODUCT FORMULATION ISSUE [None]
